FAERS Safety Report 8590371-7 (Version None)
Quarter: 2012Q3

REPORT INFORMATION
  Report Type: 
  Country: None (occurrence: None)
  Receive Date: 20120813
  Receipt Date: 20120808
  Transmission Date: 20120928
  Serious: Yes (Death, Other)
  Sender: FDA-Public Use
  Company Number: CA-ABBOTT-12P-028-0965656-00

PATIENT
  Sex: Male
  Weight: 104 kg

DRUGS (21)
  1. QVAR 40 [Suspect]
     Indication: PRODUCT USED FOR UNKNOWN INDICATION
     Dosage: 100/UG/PF 2 PF
     Dates: start: 20080623
  2. CRESTOR [Concomitant]
     Dates: start: 20100302
  3. KALETRA [Suspect]
     Indication: HIV INFECTION
  4. LEVOTHYROXINE SODIUM [Suspect]
     Indication: PRODUCT USED FOR UNKNOWN INDICATION
     Dates: start: 20060223
  5. SEREVENT [Concomitant]
     Indication: PRODUCT USED FOR UNKNOWN INDICATION
     Dosage: 50/UG/PF
     Dates: start: 20080623
  6. VALPROATE SODIUM [Concomitant]
     Indication: PRODUCT USED FOR UNKNOWN INDICATION
     Dosage: AT BEDTIME
     Dates: start: 20080715
  7. VENTOLIN [Concomitant]
     Indication: PRODUCT USED FOR UNKNOWN INDICATION
     Dosage: 100UG/PF; 1 PF QUD
     Dates: start: 20080827
  8. KALETRA [Suspect]
     Indication: ANTIRETROVIRAL THERAPY
     Dosage: 200/50; STOPPED 4 MONTHS PRIOR TO DEATH
     Route: 048
     Dates: start: 20071107, end: 20100910
  9. EFFEXOR XR [Suspect]
     Indication: PRODUCT USED FOR UNKNOWN INDICATION
     Dates: start: 20070509
  10. HYDROCHLOROTHIAZIDE [Suspect]
     Indication: PRODUCT USED FOR UNKNOWN INDICATION
     Dosage: 50 MG 1 QD
  11. NORVIR [Concomitant]
     Indication: PRODUCT USED FOR UNKNOWN INDICATION
     Dates: start: 20100917
  12. POTASSIUM CHLORIDE [Concomitant]
     Indication: PRODUCT USED FOR UNKNOWN INDICATION
     Dates: start: 20101207
  13. CRESTOR [Suspect]
     Indication: PRODUCT USED FOR UNKNOWN INDICATION
     Dates: start: 20060223
  14. TRUVADA [Suspect]
     Indication: PRODUCT USED FOR UNKNOWN INDICATION
     Dosage: 100/UG/PF 2 PF
     Dates: start: 20071108
  15. ALTACE [Suspect]
     Indication: PRODUCT USED FOR UNKNOWN INDICATION
     Dates: start: 20060223
  16. RANITIDINE [Concomitant]
     Indication: PRODUCT USED FOR UNKNOWN INDICATION
     Dates: start: 20101013
  17. INTELENCE [Concomitant]
     Indication: PRODUCT USED FOR UNKNOWN INDICATION
     Dates: start: 20100917
  18. PROCAR [Concomitant]
     Indication: PRODUCT USED FOR UNKNOWN INDICATION
     Dates: start: 20080319
  19. LAMICTAL [Concomitant]
     Indication: PRODUCT USED FOR UNKNOWN INDICATION
     Dosage: AT BEDTIME
     Dates: start: 20090325
  20. RABEPRAZOLE SODIUM [Concomitant]
     Indication: PRODUCT USED FOR UNKNOWN INDICATION
     Dates: start: 20090127
  21. PREZISTA [Concomitant]
     Indication: PRODUCT USED FOR UNKNOWN INDICATION
     Dates: start: 20100917

REACTIONS (3)
  - HEPATIC NEOPLASM MALIGNANT [None]
  - ASTHMA [None]
  - BENIGN PROSTATIC HYPERPLASIA [None]
